FAERS Safety Report 11240616 (Version 4)
Quarter: 2015Q3

REPORT INFORMATION
  Report Type: Spontaneous
  Country: US (occurrence: US)
  Receive Date: 20150706
  Receipt Date: 20150910
  Transmission Date: 20151125
  Serious: Yes (Other)
  Sender: FDA-Public Use
  Company Number: US-PFIZER INC-2015218207

PATIENT
  Age: 55 Year
  Sex: Male

DRUGS (3)
  1. CELEBREX [Suspect]
     Active Substance: CELECOXIB
     Dosage: UNK
  2. KOMBIGLYZE XR [Concomitant]
     Active Substance: METFORMIN HYDROCHLORIDE\SAXAGLIPTIN HYDROCHLORIDE
     Dosage: UNK, 2X/DAY (METFORMIN 2.5MG, SAXAGLIPTIN 100 MG)
  3. LYRICA [Suspect]
     Active Substance: PREGABALIN
     Dosage: UNK

REACTIONS (9)
  - Arthritis [Unknown]
  - Pain in extremity [Not Recovered/Not Resolved]
  - Nerve injury [Not Recovered/Not Resolved]
  - Peripheral coldness [Unknown]
  - Haematopoietic neoplasm [Unknown]
  - Diabetic neuropathy [Not Recovered/Not Resolved]
  - Insomnia [Unknown]
  - Diabetes mellitus [Not Recovered/Not Resolved]
  - Arthralgia [Unknown]
